FAERS Safety Report 21385732 (Version 1)
Quarter: 2022Q3

REPORT INFORMATION
  Report Type: Spontaneous
  Country: US (occurrence: None)
  Receive Date: 20220926
  Receipt Date: 20220926
  Transmission Date: 20221027
  Serious: No
  Sender: FDA-Public Use
  Company Number: None

PATIENT

DRUGS (1)
  1. TOLTERODINE TARTRATE [Suspect]
     Active Substance: TOLTERODINE TARTRATE
     Indication: Bladder disorder
     Dosage: FREQUENCY : AT BEDTIME;?
     Route: 048
     Dates: start: 2022

REACTIONS (6)
  - Adverse drug reaction [None]
  - Dry eye [None]
  - Injury [None]
  - Pain [None]
  - Emotional distress [None]
  - Product complaint [None]
